FAERS Safety Report 10025537 (Version 1)
Quarter: 2014Q1

REPORT INFORMATION
  Report Type: Spontaneous
  Country: US (occurrence: US)
  Receive Date: 20140320
  Receipt Date: 20140320
  Transmission Date: 20141002
  Serious: Yes (Other)
  Sender: FDA-Public Use
  Company Number: US-PFIZER INC-2014079797

PATIENT
  Sex: 0

DRUGS (2)
  1. ADVIL [Suspect]
     Dosage: UNK
  2. ADVIL [Suspect]
     Dosage: 10 DF (IN 6 HOURS OF TIME)
     Dates: start: 201403

REACTIONS (2)
  - Overdose [Unknown]
  - Splenic haemorrhage [Unknown]
